FAERS Safety Report 6611618-X (Version None)
Quarter: 2010Q1

REPORT INFORMATION
  Report Type: 
  Country: None (occurrence: None)
  Receive Date: 20100303
  Receipt Date: 20100219
  Transmission Date: 20100710
  Serious: Yes (Other)
  Sender: FDA-Public Use
  Company Number: US-JNJFOC-20100210321

PATIENT
  Age: 5 Month
  Sex: Male

DRUGS (2)
  1. ACETAMINOPHEN [Suspect]
     Route: 048
  2. ACETAMINOPHEN [Suspect]
     Indication: DRUG USE FOR UNKNOWN INDICATION
     Dosage: 1920MG OVER 2 DAYS
     Route: 048

REACTIONS (3)
  - ACCIDENTAL OVERDOSE [None]
  - BLOOD ALKALINE PHOSPHATASE INCREASED [None]
  - IRRITABILITY [None]
